FAERS Safety Report 15999449 (Version 2)
Quarter: 2022Q2

REPORT INFORMATION
  Report Type: Spontaneous
  Country: US (occurrence: US)
  Receive Date: 20190225
  Receipt Date: 20220526
  Transmission Date: 20220721
  Serious: No
  Sender: FDA-Public Use
  Company Number: US-VERTEX PHARMACEUTICALS-2019-001504

PATIENT
  Sex: Male

DRUGS (2)
  1. KALYDECO [Suspect]
     Active Substance: IVACAFTOR
     Indication: Cystic fibrosis
     Dosage: 150 MG, BID
     Route: 048
     Dates: start: 2012, end: 2020
  2. KALYDECO [Suspect]
     Active Substance: IVACAFTOR
     Dosage: 150 MG
     Route: 048
     Dates: start: 202205

REACTIONS (1)
  - Pseudomonas test positive [Unknown]
